FAERS Safety Report 25457277 (Version 2)
Quarter: 2025Q2

REPORT INFORMATION
  Report Type: Report from Study
  Country: CA (occurrence: CA)
  Receive Date: 20250619
  Receipt Date: 20250628
  Transmission Date: 20250717
  Serious: Yes (Other)
  Sender: CSL BEHRING
  Company Number: CA-BEH-2025207468

PATIENT
  Age: 42 Year
  Sex: Female
  Weight: 62 kg

DRUGS (10)
  1. HIZENTRA [Suspect]
     Active Substance: HUMAN IMMUNOGLOBULIN G
     Indication: Secondary immunodeficiency
     Route: 058
     Dates: start: 20250523
  2. HIZENTRA [Suspect]
     Active Substance: HUMAN IMMUNOGLOBULIN G
     Dosage: 8 G, QW
     Route: 065
     Dates: start: 20250606
  3. HIZENTRA [Suspect]
     Active Substance: HUMAN IMMUNOGLOBULIN G
     Route: 065
     Dates: start: 20250530
  4. HIZENTRA [Suspect]
     Active Substance: HUMAN IMMUNOGLOBULIN G
     Dosage: 8 G, QW
     Route: 058
     Dates: start: 20250523
  5. DILANTIN [Concomitant]
     Active Substance: PHENYTOIN
  6. ACETAZOLAMIDE [Concomitant]
     Active Substance: ACETAZOLAMIDE
  7. PANTOPRAZOLE [Concomitant]
     Active Substance: PANTOPRAZOLE
  8. IRON [Concomitant]
     Active Substance: IRON
  9. VITAMINS [Concomitant]
     Active Substance: VITAMINS
  10. VITAMIN D NOS [Concomitant]
     Active Substance: CHOLECALCIFEROL\ERGOCALCIFEROL

REACTIONS (58)
  - Blood pressure decreased [Unknown]
  - Pneumonia [Unknown]
  - Injection site paraesthesia [Unknown]
  - Feeling abnormal [Unknown]
  - Dyspnoea [Unknown]
  - Headache [Unknown]
  - Malaise [Unknown]
  - Lethargy [Unknown]
  - Nasopharyngitis [Unknown]
  - Vomiting [Unknown]
  - Oropharyngeal pain [Recovered/Resolved]
  - Diarrhoea [Unknown]
  - Fatigue [Unknown]
  - Ear pain [Unknown]
  - Vomiting [Unknown]
  - Infusion site erythema [Unknown]
  - Infusion site pain [Unknown]
  - Malaise [Unknown]
  - Lethargy [Unknown]
  - Diarrhoea [Unknown]
  - Diarrhoea [Unknown]
  - Diarrhoea [Unknown]
  - Ear pain [Unknown]
  - Diarrhoea [Unknown]
  - Fatigue [Unknown]
  - Vomiting [Unknown]
  - Diarrhoea [Recovered/Resolved]
  - Fatigue [Unknown]
  - Productive cough [Unknown]
  - Feeling cold [Unknown]
  - Diarrhoea [Unknown]
  - Nasal congestion [Unknown]
  - Sinus pain [Unknown]
  - Oropharyngeal pain [Unknown]
  - Feeling cold [Unknown]
  - Hyperhidrosis [Unknown]
  - Oropharyngeal pain [Unknown]
  - Ear pain [Unknown]
  - Sinusitis [Unknown]
  - Vomiting [Unknown]
  - Cough [Unknown]
  - Dysphonia [Unknown]
  - Vomiting [Unknown]
  - Sinus pain [Unknown]
  - Sputum discoloured [Unknown]
  - Nasal congestion [Unknown]
  - Sinus pain [Unknown]
  - Headache [Unknown]
  - Productive cough [Unknown]
  - Ear pain [Unknown]
  - Sinus pain [Unknown]
  - Oropharyngeal pain [Unknown]
  - Productive cough [Unknown]
  - Diarrhoea [Unknown]
  - Productive cough [Unknown]
  - Lethargy [Unknown]
  - Fatigue [Unknown]
  - Feeling abnormal [Unknown]

NARRATIVE: CASE EVENT DATE: 20250523
